FAERS Safety Report 6107233-7 (Version None)
Quarter: 2009Q1

REPORT INFORMATION
  Report Type: 
  Country: None (occurrence: None)
  Receive Date: 20090309
  Receipt Date: 20090226
  Transmission Date: 20090719
  Serious: Yes (Other)
  Sender: FDA-Public Use
  Company Number: CO-JNJFOC-20090300864

PATIENT
  Age: 61 Year
  Sex: Male

DRUGS (4)
  1. REMICADE [Suspect]
     Indication: COLITIS ULCERATIVE
     Dosage: 6 INFUSIONS
     Route: 042
  2. AZATHIOPRINE [Concomitant]
     Indication: COLITIS ULCERATIVE
  3. FOLIC ACID [Concomitant]
  4. OMEPRAZOLE [Concomitant]
     Route: 048

REACTIONS (1)
  - GASTRIC CANCER [None]
